FAERS Safety Report 8889412 (Version 1)
Quarter: 2012Q4

REPORT INFORMATION
  Report Type: Spontaneous
  Country: US (occurrence: None)
  Receive Date: 20121107
  Receipt Date: 20121107
  Transmission Date: 20130627
  Serious: Yes (Hospitalization)
  Sender: FDA-Public Use
  Company Number: None

PATIENT
  Age: 34 Year
  Sex: Female
  Weight: 68.04 kg

DRUGS (4)
  1. KETOLORAC [Suspect]
     Indication: BACK PAIN
     Route: 041
  2. SOMA [Concomitant]
  3. MORPHINE [Concomitant]
  4. FENTANYL [Concomitant]

REACTIONS (1)
  - Vomiting [None]
